FAERS Safety Report 12774908 (Version 1)
Quarter: 2016Q3

REPORT INFORMATION
  Report Type: Spontaneous
  Country: US (occurrence: US)
  Receive Date: 20160923
  Receipt Date: 20160923
  Transmission Date: 20161109
  Serious: No
  Sender: FDA-Public Use
  Company Number: US-PFIZER INC-2016446341

PATIENT
  Age: 19 Year
  Sex: Male
  Weight: 82 kg

DRUGS (1)
  1. PRISTIQ EXTENDED-RELEASE [Suspect]
     Active Substance: DESVENLAFAXINE SUCCINATE
     Indication: DEPRESSION
     Dosage: UNK
     Dates: start: 20160911

REACTIONS (2)
  - Migraine [Unknown]
  - Formication [Unknown]

NARRATIVE: CASE EVENT DATE: 20160911
